FAERS Safety Report 6995188-2 (Version None)
Quarter: 2010Q3

REPORT INFORMATION
  Report Type: 
  Country: None (occurrence: None)
  Receive Date: 20100915
  Receipt Date: 20100902
  Transmission Date: 20110219
  Serious: Yes (Death)
  Sender: FDA-Public Use
  Company Number: UTC-001405

PATIENT
  Age: 64 Year
  Sex: Female
  Weight: 43.6 kg

DRUGS (5)
  1. REMODULIN [Suspect]
     Indication: PULMONARY ARTERIAL HYPERTENSION
     Dosage: 76.32 UG/KG (0.053 UG/KG, 1 IN 1 MIN) ,INTRAVENOUS
     Route: 042
     Dates: start: 20080429
  2. LASIX [Concomitant]
  3. REVATIO [Concomitant]
  4. PRILOSEC (OMEPRAZOLE) [Concomitant]
  5. GAS X (SIMETICONE) [Concomitant]

REACTIONS (1)
  - DEATH [None]
